FAERS Safety Report 12418118 (Version 2)
Quarter: 2016Q4

REPORT INFORMATION
  Report Type: Spontaneous
  Country: US (occurrence: US)
  Receive Date: 20160531
  Receipt Date: 20161214
  Transmission Date: 20170207
  Serious: No
  Sender: FDA-Public Use
  Company Number: US-APOTEX-2016AP008110

PATIENT
  Sex: Male

DRUGS (2)
  1. FENTANYL TRANSDERMAL SYSTEM [Suspect]
     Active Substance: FENTANYL
     Dosage: ONE 25 ?G PATCH, EVERY 72 HOURS
     Route: 065
  2. FENTANYL TRANSDERMAL SYSTEM [Suspect]
     Active Substance: FENTANYL
     Indication: PRODUCT USED FOR UNKNOWN INDICATION
     Dosage: ONE 100 ?G PATCH, EVERY 72 HOURS
     Route: 065

REACTIONS (6)
  - Feeling abnormal [Unknown]
  - Product adhesion issue [Unknown]
  - Energy increased [Unknown]
  - Product physical issue [Unknown]
  - Disorientation [Unknown]
  - Hyperhidrosis [Unknown]
